FAERS Safety Report 15263958 (Version 2)
Quarter: 2018Q4

REPORT INFORMATION
  Report Type: Spontaneous
  Country: US (occurrence: US)
  Receive Date: 20180810
  Receipt Date: 20181018
  Transmission Date: 20190204
  Serious: Yes (Other)
  Sender: FDA-Public Use
  Company Number: US-SA-2018SA213402

PATIENT
  Age: 55 Year
  Sex: Female
  Weight: 71 kg

DRUGS (3)
  1. TAXOTERE [Suspect]
     Active Substance: DOCETAXEL
     Dosage: 134 MG, Q3W
     Route: 042
     Dates: start: 20170202, end: 20170202
  2. PARAPLATIN [Concomitant]
     Active Substance: CARBOPLATIN
  3. TAXOTERE [Suspect]
     Active Substance: DOCETAXEL
     Indication: BREAST CANCER FEMALE
     Dosage: 134 MG, Q3W
     Route: 042
     Dates: start: 20161013, end: 20161013

REACTIONS (2)
  - Alopecia [Not Recovered/Not Resolved]
  - Psychological trauma [Unknown]

NARRATIVE: CASE EVENT DATE: 20161013
